FAERS Safety Report 7624532-8 (Version None)
Quarter: 2011Q3

REPORT INFORMATION
  Report Type: 
  Country: None (occurrence: None)
  Receive Date: 20110720
  Receipt Date: 20110706
  Transmission Date: 20111222
  Serious: Yes (Hospitalization, Other)
  Sender: FDA-Public Use
  Company Number: US-ASTRAZENECA-2011SE40250

PATIENT
  Sex: Female

DRUGS (1)
  1. NEXIUM [Suspect]
     Indication: GASTROOESOPHAGEAL REFLUX DISEASE
     Dosage: DOSE FREQUENCY-BID, TOTAL DAILY DOSE-40 MG
     Route: 048

REACTIONS (3)
  - BRONCHITIS [None]
  - HERNIA HIATUS REPAIR [None]
  - HIATUS HERNIA [None]
